FAERS Safety Report 12229708 (Version 1)
Quarter: 2016Q1

REPORT INFORMATION
  Report Type: Spontaneous
  Country: US (occurrence: None)
  Receive Date: 20160331
  Receipt Date: 20160331
  Transmission Date: 20160526
  Serious: Yes (Other)
  Sender: FDA-Public Use
  Company Number: None

PATIENT
  Age: 36 Year
  Sex: Female

DRUGS (1)
  1. ENBREL [Suspect]
     Active Substance: ETANERCEPT
     Dosage: SUBCUTANEOUS 057 INJECTABLE WEEKLY
     Route: 058

REACTIONS (2)
  - Oropharyngeal pain [None]
  - Multiple allergies [None]

NARRATIVE: CASE EVENT DATE: 20160329
